FAERS Safety Report 23570065 (Version 1)
Quarter: 2024Q1

REPORT INFORMATION
  Report Type: Spontaneous
  Country: JP (occurrence: JP)
  Receive Date: 20240227
  Receipt Date: 20240227
  Transmission Date: 20240410
  Serious: Yes (Other)
  Sender: FDA-Public Use
  Company Number: JP-SUN PHARMACEUTICAL INDUSTRIES LTD-2024RR-432391

PATIENT
  Age: 46 Year
  Sex: Female

DRUGS (3)
  1. IRINOTECAN [Suspect]
     Active Substance: IRINOTECAN
     Indication: Ovarian clear cell carcinoma
     Dosage: 60 MILLIGRAM/SQ. METER
     Route: 065
  2. GEMCITABINE [Suspect]
     Active Substance: GEMCITABINE
     Indication: Ovarian clear cell carcinoma
     Dosage: FOURTH-LINE REGIMEN
     Route: 065
  3. CISPLATIN [Suspect]
     Active Substance: CISPLATIN
     Indication: Ovarian clear cell carcinoma
     Dosage: 60 MILLIGRAM/SQ. METER
     Route: 065

REACTIONS (4)
  - Disease progression [Unknown]
  - Palpitations [Unknown]
  - Dyspnoea [Unknown]
  - Cough [Unknown]
